FAERS Safety Report 23701056 (Version 3)
Quarter: 2025Q4

REPORT INFORMATION
  Report Type: Spontaneous
  Country: EU (occurrence: EU)
  Receive Date: 20240403
  Receipt Date: 20251226
  Transmission Date: 20260118
  Serious: Yes (Hospitalization)
  Sender: AMGEN
  Company Number: EU-AMGEN-NLDSP2011059868

PATIENT
  Age: 50 Year
  Sex: Female

DRUGS (25)
  1. NEULASTA [Suspect]
     Active Substance: PEGFILGRASTIM
     Indication: Prophylaxis
     Dosage: UNK (DOSAGE FORM: UNSPECIFIED)
     Route: 065
  2. DOXORUBICIN HYDROCHLORIDE [Suspect]
     Active Substance: DOXORUBICIN HYDROCHLORIDE
     Indication: Breast cancer
     Dosage: 78 MILLIGRAM, QD (DOSAGE FORM: LIPOSOME INJECTION, CYCLE 1)
     Route: 042
     Dates: start: 20110718
  3. DOXORUBICIN HYDROCHLORIDE [Suspect]
     Active Substance: DOXORUBICIN HYDROCHLORIDE
     Dosage: 78 MILLIGRAM (DOSAGE FORM: LIPOSOME INJECTION, CYCLE 2)
     Route: 042
  4. DOXORUBICIN HYDROCHLORIDE [Suspect]
     Active Substance: DOXORUBICIN HYDROCHLORIDE
     Dosage: 78 MILLIGRAM (DOSAGE FORM: LIPOSOME INJECTION, CYCLE 3)
     Route: 042
  5. DOXORUBICIN HYDROCHLORIDE [Suspect]
     Active Substance: DOXORUBICIN HYDROCHLORIDE
     Dosage: 78 MILLIGRAM (DOSAGE FORM: LIPOSOME INJECTION, CYCLE 4)
     Route: 042
  6. DOXORUBICIN HYDROCHLORIDE [Suspect]
     Active Substance: DOXORUBICIN HYDROCHLORIDE
     Dosage: 78 MILLIGRAM, QD (DOSAGE FORM: LIPOSOME INJECTION, CYCLE 5)
     Route: 042
     Dates: start: 20111028
  7. CYCLOPHOSPHAMIDE [Suspect]
     Active Substance: CYCLOPHOSPHAMIDE
     Indication: Breast cancer
     Dosage: 780 MILLIGRAM, QD (DOSAGE FORM: UNSPECIFIED, CYCLE 1)
     Route: 042
     Dates: start: 20110718
  8. CYCLOPHOSPHAMIDE [Suspect]
     Active Substance: CYCLOPHOSPHAMIDE
     Dosage: 780 MILLIGRAM, QD (DOSAGE FORM: UNSPECIFIED, CYCLE 2)
     Route: 042
  9. CYCLOPHOSPHAMIDE [Suspect]
     Active Substance: CYCLOPHOSPHAMIDE
     Dosage: 780 MILLIGRAM, QD (DOSAGE FORM: UNSPECIFIED, CYCLE 3)
     Route: 042
  10. CYCLOPHOSPHAMIDE [Suspect]
     Active Substance: CYCLOPHOSPHAMIDE
     Dosage: 780 MILLIGRAM, QD (DOSAGE FORM: UNSPECIFIED, CYCLE 4)
     Route: 042
  11. CYCLOPHOSPHAMIDE [Suspect]
     Active Substance: CYCLOPHOSPHAMIDE
     Dosage: 780 MILLIGRAM, QD (DOSAGE FORM: UNSPECIFIED, CYCLE 5)
     Route: 042
     Dates: start: 20111028
  12. DOCETAXEL [Suspect]
     Active Substance: DOCETAXEL
     Indication: Breast cancer
     Dosage: 120 MILLIGRAM, QD (DOSAGE FORM: UNSPECIFIED, CYCLE 1)
     Route: 042
     Dates: start: 20110718
  13. DOCETAXEL [Suspect]
     Active Substance: DOCETAXEL
     Dosage: 120 MILLIGRAM, QD (DOSAGE FORM: UNSPECIFIED, CYCLE 2)
     Route: 042
  14. DOCETAXEL [Suspect]
     Active Substance: DOCETAXEL
     Dosage: 120 MILLIGRAM, QD (DOSAGE FORM: UNSPECIFIED, CYCLE 3)
     Route: 042
  15. DOCETAXEL [Suspect]
     Active Substance: DOCETAXEL
     Dosage: 120 MILLIGRAM, QD (DOSAGE FORM: UNSPECIFIED, CYCLE 4)
     Route: 042
  16. DOCETAXEL [Suspect]
     Active Substance: DOCETAXEL
     Dosage: 120 MILLIGRAM, QD (DOSAGE FORM: UNSPECIFIED, CYCLE 5)
     Route: 042
     Dates: start: 20111028
  17. ONDANSETRON [Concomitant]
     Active Substance: ONDANSETRON
     Indication: Prophylaxis
     Dosage: UNK (DOSAGE FORM: UNSPECIFIED)
  18. GRANISETRON [Concomitant]
     Active Substance: GRANISETRON
     Indication: Prophylaxis
     Dosage: UNK
     Route: 065
  19. DEXAMETHASONE [Concomitant]
     Active Substance: DEXAMETHASONE
     Indication: Prophylaxis
     Dosage: UNK
     Route: 065
  20. POLYETHYLENE GLYCOLS [Concomitant]
     Active Substance: POLYETHYLENE GLYCOLS
     Dosage: UNK (DOSAGE FORM: UNSPECIFIED)
     Route: 048
     Dates: start: 20111029
  21. METOCLOPRAMIDE [Concomitant]
     Active Substance: METOCLOPRAMIDE
     Dosage: 10 MILLIGRAM (DOSAGE FORM: UNSPECIFIED/10 MG, UNK)
     Route: 048
     Dates: start: 20110718
  22. KLYXENEMA SORBIT [Concomitant]
     Dosage: 120 MILLILITER, QD (DOSAGE FORM: UNSPECIFIED/120 ML, QD)
     Route: 054
     Dates: start: 20111029
  23. ACETAMINOPHEN [Concomitant]
     Active Substance: ACETAMINOPHEN
     Dosage: 1000 MG, UNK (DOSAGE FORM: UNSPECIFIED/1000 MG, UNK)
     Route: 048
     Dates: start: 20110718
  24. LEVOTHYROXINE [Concomitant]
     Active Substance: LEVOTHYROXINE
     Dosage: 37.5 MICROGRAM (DOSAGE FORM: UNSPECIFIED 37.5 MUG, UNK)
     Route: 048
     Dates: start: 20111014
  25. MAGNESIUM OXIDE [Concomitant]
     Active Substance: MAGNESIUM OXIDE
     Dosage: 500 MILLIGRAM (DOSAGE FORM: UNSPECIFIED/500 MG, UNK)
     Route: 048
     Dates: start: 20110718

REACTIONS (1)
  - Pyrexia [Recovered/Resolved]

NARRATIVE: CASE EVENT DATE: 20111028
